FAERS Safety Report 5381702-X (Version None)
Quarter: 2007Q2

REPORT INFORMATION
  Report Type: 
  Country: None (occurrence: None)
  Receive Date: 20070629
  Receipt Date: 20070427
  Transmission Date: 20071010
  Serious: Yes (Disabling, Other)
  Sender: FDA-Public Use
  Company Number: US200703001039

PATIENT
  Age: 65 Year
  Sex: Male

DRUGS (1)
  1. HUMALOG MIX 75/25 [Suspect]
     Indication: DIABETES MELLITUS
     Dates: start: 19930101, end: 20060101

REACTIONS (2)
  - TRANSIENT ISCHAEMIC ATTACK [None]
  - VASCULAR DEMENTIA [None]
